FAERS Safety Report 8435756-4 (Version None)
Quarter: 2012Q2

REPORT INFORMATION
  Report Type: 
  Country: None (occurrence: None)
  Receive Date: 20120608
  Receipt Date: 20120601
  Transmission Date: 20120825
  Serious: Yes (Hospitalization)
  Sender: FDA-Public Use
  Company Number: WAES 1206USA00654

PATIENT
  Age: 89 Year
  Sex: Female

DRUGS (7)
  1. SELBEX [Concomitant]
  2. FOSAMAX [Concomitant]
  3. MG OXIDE [Concomitant]
  4. NEUROTROPIN [Concomitant]
  5. LANSOPRAZOLE [Concomitant]
  6. JANUVIA [Suspect]
     Indication: TYPE 2 DIABETES MELLITUS
     Dosage: 25 MG/DAILY, PO
     Route: 048
     Dates: start: 20110428
  7. NEO VITACAIN [Concomitant]

REACTIONS (2)
  - COMPRESSION FRACTURE [None]
  - LUMBAR VERTEBRAL FRACTURE [None]
